FAERS Safety Report 18935294 (Version 2)
Quarter: 2021Q1

REPORT INFORMATION
  Report Type: Report from Study
  Country: ES (occurrence: ES)
  Receive Date: 20210224
  Receipt Date: 20210224
  Transmission Date: 20210420
  Serious: Yes (Death, Other)
  Sender: FDA-Public Use
  Company Number: ES-IPSEN BIOPHARMACEUTICALS, INC.-2021-04605

PATIENT

DRUGS (1)
  1. LANREOTIDE ACETATE [Suspect]
     Active Substance: LANREOTIDE ACETATE
     Indication: GASTROENTEROPANCREATIC NEUROENDOCRINE TUMOUR DISEASE
     Dosage: 120 MG, 90 MG, 60 MG OR UNKNOWN DOSE
     Route: 065

REACTIONS (11)
  - Liver disorder [Unknown]
  - Malabsorption [Unknown]
  - Cholelithiasis [Unknown]
  - Asthenia [Unknown]
  - Vomiting [Unknown]
  - Disease progression [Unknown]
  - Adverse event [Unknown]
  - Diarrhoea [Unknown]
  - Death [Fatal]
  - Blood disorder [Unknown]
  - Cardiac disorder [Unknown]
